FAERS Safety Report 5138380-4 (Version None)
Quarter: 2006Q4

REPORT INFORMATION
  Report Type: 
  Country: None (occurrence: None)
  Receive Date: 20061024
  Receipt Date: 20061010
  Transmission Date: 20070319
  Serious: Yes (Other)
  Sender: FDA-Public Use
  Company Number: 1-14301592/MED-06187

PATIENT
  Age: 21 Year
  Sex: Male

DRUGS (2)
  1. TRAZODONE HCL [Suspect]
     Indication: OBSESSIVE-COMPULSIVE DISORDER
     Dosage: 150 MG TO 300 MG ONCE DAILY,ORAL
     Route: 048
     Dates: start: 20060404, end: 20061009
  2. CITALOPRAM 40 MG (MFR DR. REDDY) [Suspect]
     Indication: OBSESSIVE-COMPULSIVE DISORDER
     Dosage: 40 MG ONCE DAILY, ORAL
     Route: 048
     Dates: start: 20060404, end: 20061009

REACTIONS (2)
  - HOMICIDAL IDEATION [None]
  - SUICIDAL IDEATION [None]
